FAERS Safety Report 5581897-9 (Version None)
Quarter: 2008Q1

REPORT INFORMATION
  Report Type: 
  Country: None (occurrence: None)
  Receive Date: 20080104
  Receipt Date: 20071224
  Transmission Date: 20080703
  Serious: Yes (Other)
  Sender: FDA-Public Use
  Company Number: NL-ROCHE-538875

PATIENT
  Age: 53 Year
  Sex: Female

DRUGS (1)
  1. INTERFERON ALFA-2A [Suspect]
     Dosage: INDICATION: NEUROENDOCRINIC PANCREATIC TUMOR WITH LIVER METASTASES.
     Route: 058
     Dates: start: 20000101

REACTIONS (1)
  - PORPHYRIA NON-ACUTE [None]
